FAERS Safety Report 4407210-8 (Version None)
Quarter: 2004Q3

REPORT INFORMATION
  Report Type: 
  Country: None (occurrence: None)
  Receive Date: 20040721
  Receipt Date: 20040701
  Transmission Date: 20050211
  Serious: Yes (Death, Other)
  Sender: FDA-Public Use
  Company Number: US_0407104100

PATIENT
  Age: 40 Year
  Sex: Male
  Weight: 88 kg

DRUGS (14)
  1. PROZAC [Suspect]
     Indication: DEPRESSION
     Dates: end: 19970101
  2. FLUOXETINE [Concomitant]
  3. AMITRIPTYLINE HCL [Concomitant]
  4. NEURONTIN [Concomitant]
  5. XANAX (ALPRAZOLAM DUM) [Concomitant]
  6. AMBIEN [Concomitant]
  7. OXYCONTIN [Concomitant]
  8. MORPHINE [Concomitant]
  9. HYDROCODONE [Concomitant]
  10. OXYCODONE HCL [Concomitant]
  11. NITROQUICK (GLYCERYL TRINITRATE) [Concomitant]
  12. LEVAQUIN [Concomitant]
  13. HYDROCHLOROTHIAZIDE [Concomitant]
  14. TRIAMTERENE [Concomitant]

REACTIONS (6)
  - ACCIDENTAL OVERDOSE [None]
  - BACK PAIN [None]
  - BURNING SENSATION [None]
  - HYPERHIDROSIS [None]
  - PHARMACEUTICAL PRODUCT COMPLAINT [None]
  - SOMNOLENCE [None]
